FAERS Safety Report 10450647 (Version 1)
Quarter: 2014Q3

REPORT INFORMATION
  Report Type: Spontaneous
  Country: FR (occurrence: FR)
  Receive Date: 20140912
  Receipt Date: 20140912
  Transmission Date: 20150326
  Serious: Yes (Hospitalization, Other)
  Sender: FDA-Public Use
  Company Number: FR-BRISTOL-MYERS SQUIBB COMPANY-21375605

PATIENT
  Age: 62 Year
  Sex: Female

DRUGS (17)
  1. LEVOTHYROXINE SODIUM. [Concomitant]
     Active Substance: LEVOTHYROXINE SODIUM
  2. ZELITREX [Suspect]
     Active Substance: VALACYCLOVIR HYDROCHLORIDE
     Indication: MUCOSAL INFLAMMATION
     Dosage: 17MAY14
     Route: 048
     Dates: start: 20140417, end: 20140517
  3. DEXAMETHASONE. [Suspect]
     Active Substance: DEXAMETHASONE
     Indication: RENAL AMYLOIDOSIS
     Dosage: 20APR14
     Route: 048
     Dates: start: 20140417, end: 20140420
  4. INEXIUM [Concomitant]
     Active Substance: ESOMEPRAZOLE
  5. CALCIDIA [Concomitant]
     Active Substance: CALCIUM POLYCARBOPHIL
  6. COUMADINE [Suspect]
     Active Substance: WARFARIN SODIUM
     Indication: THROMBOSIS PROPHYLAXIS
     Route: 048
     Dates: start: 20140416
  7. FUROSEMIDE. [Suspect]
     Active Substance: FUROSEMIDE
     Indication: OEDEMA PERIPHERAL
  8. EZETROL [Concomitant]
     Active Substance: EZETIMIBE
  9. BACTRIM [Suspect]
     Active Substance: SULFAMETHOXAZOLE\TRIMETHOPRIM
     Indication: OPPORTUNISTIC INFECTION PROPHYLAXIS
     Dosage: 17MAY14
     Route: 048
     Dates: start: 20140424, end: 20140517
  10. ORACILLINE [Suspect]
     Active Substance: PENICILLIN V
     Indication: PROPHYLAXIS
     Dosage: 17MAY14
     Route: 048
     Dates: start: 20140416, end: 20140517
  11. LASILIX [Suspect]
     Active Substance: FUROSEMIDE
     Indication: OEDEMA PERIPHERAL
     Dosage: 11AP14-12APR14:40MGBID?12AP14-14AP14,15AP-17AP14:500MG?17AP-18AP:40MGBID
     Route: 042
     Dates: start: 20140410, end: 20140612
  12. ALKERAN [Suspect]
     Active Substance: MELPHALAN
     Indication: RENAL AMYLOIDOSIS
     Route: 048
     Dates: start: 20140417, end: 20140420
  13. MODAMIDE [Suspect]
     Active Substance: AMILORIDE HYDROCHLORIDE
     Indication: OEDEMA PERIPHERAL
     Dosage: 17MAY14?12APR14-18APR14:5MG?24APR:5MG 1 TAB/D
     Route: 048
     Dates: start: 20140412
  14. LETROZOLE. [Concomitant]
     Active Substance: LETROZOLE
  15. DIFFU-K [Concomitant]
     Active Substance: POTASSIUM CHLORIDE
  16. ZELITREX [Suspect]
     Active Substance: VALACYCLOVIR HYDROCHLORIDE
     Indication: ANTIVIRAL PROPHYLAXIS
     Dosage: 17MAY14
     Route: 048
     Dates: start: 20140417, end: 20140517
  17. FEMARA [Concomitant]
     Active Substance: LETROZOLE

REACTIONS (1)
  - Renal failure acute [Not Recovered/Not Resolved]

NARRATIVE: CASE EVENT DATE: 20140418
